FAERS Safety Report 8762118 (Version 2)
Quarter: 2012Q4

REPORT INFORMATION
  Report Type: 
  Country: ZA (occurrence: ZA)
  Receive Date: 20120830
  Receipt Date: 20120910
  Transmission Date: 20130627
  Serious: Yes (Hospitalization)
  Sender: FDA-Public Use
  Company Number: ZA-NOVOPROD-358572

PATIENT
  Age: 0 Year
  Sex: Male
  Weight: 1.94 kg

DRUGS (2)
  1. NOVORAPID FLEXPEN [Suspect]
     Indication: DIABETES MELLITUS
     Dosage: 45 U, qd
     Route: 064
     Dates: start: 20111019
  2. PROTAPHANE FLEXPEN [Suspect]
     Indication: DIABETES MELLITUS
     Dosage: 25 U, qd
     Route: 064
     Dates: start: 20111019

REACTIONS (3)
  - Premature baby [Recovered/Resolved]
  - Foetal distress syndrome [Recovered/Resolved]
  - Foetal exposure during pregnancy [Recovered/Resolved]
